FAERS Safety Report 11597975 (Version 2)
Quarter: 2016Q2

REPORT INFORMATION
  Report Type: Spontaneous
  Country: US (occurrence: US)
  Receive Date: 20151006
  Receipt Date: 20160405
  Transmission Date: 20160815
  Serious: No
  Sender: FDA-Public Use
  Company Number: US-ROCHE-1511023

PATIENT
  Sex: Female

DRUGS (2)
  1. REGLAN [Concomitant]
     Active Substance: METOCLOPRAMIDE HYDROCHLORIDE
  2. ERIVEDGE [Suspect]
     Active Substance: VISMODEGIB
     Indication: BASAL CELL CARCINOMA
     Route: 048
     Dates: start: 20140813

REACTIONS (6)
  - Drug dose omission [Unknown]
  - Ageusia [Unknown]
  - Nausea [Unknown]
  - Decreased appetite [Unknown]
  - Alopecia [Unknown]
  - Malaise [Unknown]
